FAERS Safety Report 5020494-0 (Version None)
Quarter: 2006Q2

REPORT INFORMATION
  Report Type: 
  Country: None (occurrence: None)
  Receive Date: 20060602
  Receipt Date: 20060524
  Transmission Date: 20061013
  Serious: Yes (Hospitalization)
  Sender: FDA-Public Use
  Company Number: THQ2006A00432

PATIENT
  Age: 54 Year
  Sex: Female

DRUGS (3)
  1. ACTOS [Suspect]
     Indication: DIABETES MELLITUS
     Dosage: 30 MG (1 D) PER ORAL
     Route: 048
     Dates: start: 20040426, end: 20040508
  2. PROZAC [Suspect]
     Indication: DEPRESSION
     Dosage: 20 MG (20 MG, 1 IN 1 D) PER ORAL
     Route: 048
  3. METFORMIN HCL [Concomitant]

REACTIONS (2)
  - CARDIAC ASTHMA [None]
  - MYOCARDIAL INFARCTION [None]
